FAERS Safety Report 5070640-8 (Version None)
Quarter: 2006Q3

REPORT INFORMATION
  Report Type: 
  Country: None (occurrence: None)
  Receive Date: 20060804
  Receipt Date: 20050815
  Transmission Date: 20061208
  Serious: No
  Sender: FDA-Public Use
  Company Number: US-GLAXOSMITHKLINE-A0570204A

PATIENT
  Age: 20 Year
  Sex: Male

DRUGS (1)
  1. EQUATE NICOTINE GUM 4MG [Suspect]
     Dates: start: 20050813, end: 20050813

REACTIONS (2)
  - ORAL DISCOMFORT [None]
  - TOOTHACHE [None]
